FAERS Safety Report 21914896 (Version 2)
Quarter: 2023Q1

REPORT INFORMATION
  Report Type: Other
  Country: JP (occurrence: JP)
  Receive Date: 20230126
  Receipt Date: 20230221
  Transmission Date: 20230418
  Serious: Yes (Hospitalization, Other)
  Sender: FDA-Public Use
  Company Number: JP-CHUGAI-2022004481

PATIENT
  Age: 54 Year
  Sex: Male
  Weight: 72.1 kg

DRUGS (22)
  1. ATEZOLIZUMAB [Suspect]
     Active Substance: ATEZOLIZUMAB
     Indication: Non-small cell lung cancer
     Dosage: 1200 MILLIGRAM
     Route: 041
     Dates: start: 20210323
  2. ATEZOLIZUMAB [Suspect]
     Active Substance: ATEZOLIZUMAB
     Dosage: 1200 MILLIGRAM, ONCE/3WEEKS
     Route: 041
     Dates: start: 20220512, end: 20220915
  3. BEVACIZUMAB [Suspect]
     Active Substance: BEVACIZUMAB
     Indication: Non-small cell lung cancer
     Dosage: 1030 MILLIGRAM
     Route: 041
     Dates: start: 20210323
  4. BEVACIZUMAB [Suspect]
     Active Substance: BEVACIZUMAB
     Dosage: 1030 MILLIGRAM
     Route: 041
     Dates: start: 20210511
  5. BEVACIZUMAB [Suspect]
     Active Substance: BEVACIZUMAB
     Dosage: 1080 MILLIGRAM
     Route: 041
     Dates: start: 20210608
  6. BEVACIZUMAB [Suspect]
     Active Substance: BEVACIZUMAB
     Dosage: 1030 MILLIGRAM, ONCE/3WEEKS
     Route: 041
     Dates: start: 20220106
  7. BEVACIZUMAB [Suspect]
     Active Substance: BEVACIZUMAB
     Dosage: 1030 MILLIGRAM
     Route: 041
     Dates: end: 20220512
  8. BEVACIZUMAB [Suspect]
     Active Substance: BEVACIZUMAB
     Dosage: 950 MILLIGRAM, ONCE/3WEEKS
     Route: 041
     Dates: start: 20220602, end: 20220915
  9. CARBOPLATIN [Suspect]
     Active Substance: CARBOPLATIN
     Indication: Non-small cell lung cancer
     Dosage: 665 MILLIGRAM, SINGLE
     Route: 041
     Dates: start: 20210323, end: 20210323
  10. CARBOPLATIN [Suspect]
     Active Substance: CARBOPLATIN
     Dosage: 530 MILLIGRAM, SINGLE
     Route: 041
     Dates: start: 20210413, end: 20210413
  11. CARBOPLATIN [Suspect]
     Active Substance: CARBOPLATIN
     Dosage: 540 MILLIGRAM, SINGLE, MOST RECENT DOSE ON 11/MAY/2021
     Route: 041
     Dates: start: 20210511
  12. PACLITAXEL [Suspect]
     Active Substance: PACLITAXEL
     Indication: Non-small cell lung cancer
     Dosage: 315 MILLIGRAM, ONCE/3WEEKS
     Route: 041
     Dates: start: 20210323, end: 20210413
  13. PACLITAXEL [Suspect]
     Active Substance: PACLITAXEL
     Dosage: 310 MILLIGRAM, QD, MOST RECENT DOSE ON 11/MAY/2021
     Route: 041
     Dates: start: 20210511
  14. FENTANYL CITRATE [Suspect]
     Active Substance: FENTANYL CITRATE
     Indication: Product used for unknown indication
     Route: 062
  15. VONOPRAZAN FUMARATE [Suspect]
     Active Substance: VONOPRAZAN FUMARATE
     Indication: Product used for unknown indication
     Route: 048
  16. ETIZOLAM [Suspect]
     Active Substance: ETIZOLAM
     Indication: Product used for unknown indication
     Route: 048
  17. ABSTRAL [Suspect]
     Active Substance: FENTANYL CITRATE
     Indication: Product used for unknown indication
     Route: 048
  18. DAYVIGO [Suspect]
     Active Substance: LEMBOREXANT
     Indication: Product used for unknown indication
     Route: 048
  19. DOMPERIDONE [Suspect]
     Active Substance: DOMPERIDONE
     Indication: Product used for unknown indication
     Route: 048
  20. ACETAMINOPHEN [Suspect]
     Active Substance: ACETAMINOPHEN
     Indication: Product used for unknown indication
     Route: 048
  21. CELECOXIB [Suspect]
     Active Substance: CELECOXIB
     Indication: Product used for unknown indication
     Route: 048
  22. LYRICA [Suspect]
     Active Substance: PREGABALIN
     Indication: Product used for unknown indication
     Route: 048

REACTIONS (6)
  - Pulmonary toxicity [Recovered/Resolved]
  - Pneumonia [Recovering/Resolving]
  - Pneumonia bacterial [Recovering/Resolving]
  - Myelosuppression [Unknown]
  - Hiccups [Recovering/Resolving]
  - Nausea [Recovering/Resolving]

NARRATIVE: CASE EVENT DATE: 20210325
